FAERS Safety Report 17153592 (Version 2)
Quarter: 2020Q1

REPORT INFORMATION
  Report Type: Report from Study
  Country: US (occurrence: US)
  Receive Date: 20191213
  Receipt Date: 20200115
  Transmission Date: 20200409
  Serious: Yes (Hospitalization)
  Sender: FDA-Public Use
  Company Number: US-BAUSCH-BL-2019-064707

PATIENT
  Sex: Female
  Weight: 74.46 kg

DRUGS (1)
  1. XIFAXAN [Suspect]
     Active Substance: RIFAXIMIN
     Indication: HEPATIC ENCEPHALOPATHY
     Dosage: 1 TABLET BY MOUTH
     Route: 048
     Dates: start: 201710

REACTIONS (2)
  - Loss of consciousness [Not Recovered/Not Resolved]
  - Hepatotoxicity [Not Recovered/Not Resolved]
